FAERS Safety Report 5863345-4 (Version None)
Quarter: 2008Q3

REPORT INFORMATION
  Report Type: 
  Country: None (occurrence: None)
  Receive Date: 20080828
  Receipt Date: 20080820
  Transmission Date: 20090109
  Serious: Yes (Hospitalization)
  Sender: FDA-Public Use
  Company Number: PHHY2008JP18809

PATIENT
  Age: 77 Year
  Sex: Female

DRUGS (1)
  1. NEORAL [Suspect]
     Indication: MYASTHENIA GRAVIS
     Dosage: 75MG DAILY (25MG IN THE MORNING AND 50MG IN THE EVENING)
     Route: 048

REACTIONS (1)
  - FEELING ABNORMAL [None]
